FAERS Safety Report 18279344 (Version 1)
Quarter: 2020Q3

REPORT INFORMATION
  Report Type: Spontaneous
  Country: US (occurrence: US)
  Receive Date: 20200917
  Receipt Date: 20200917
  Transmission Date: 20201103
  Serious: No
  Sender: FDA-Public Use
  Company Number: US-TEVA-2020-US-1828701

PATIENT
  Age: 73 Year
  Sex: Female

DRUGS (1)
  1. CLOBETASOL PROPIONATE ACTAVIS [Suspect]
     Active Substance: CLOBETASOL PROPIONATE
     Route: 065

REACTIONS (1)
  - Urticaria [Unknown]
